FAERS Safety Report 9205424 (Version 3)
Quarter: 2013Q2

REPORT INFORMATION
  Report Type: Spontaneous
  Country: US (occurrence: US)
  Receive Date: 20130403
  Receipt Date: 20130605
  Transmission Date: 20140414
  Serious: No
  Sender: FDA-Public Use
  Company Number: US-009507513-1304USA000240

PATIENT
  Age: 30 Year
  Sex: Female
  Weight: 136.5 kg

DRUGS (3)
  1. SAPHRIS [Suspect]
     Indication: BIPOLAR I DISORDER
     Dosage: 5 MG, QD
     Route: 060
     Dates: start: 20121011, end: 20121024
  2. ABILIFY [Concomitant]
     Dosage: 30 MG, QD
  3. GEODON [Concomitant]
     Dosage: 180 MG, QD

REACTIONS (4)
  - Oropharyngeal pain [Recovered/Resolved]
  - Oral mucosal blistering [Recovered/Resolved]
  - Dysphagia [Recovered/Resolved]
  - Mouth ulceration [Recovered/Resolved]
